FAERS Safety Report 8096833-3 (Version None)
Quarter: 2012Q1

REPORT INFORMATION
  Report Type: 
  Country: None (occurrence: None)
  Receive Date: 20120129
  Receipt Date: 20111201
  Transmission Date: 20120608
  Serious: Yes (Other)
  Sender: FDA-Public Use
  Company Number: US-ABBOTT-11P-163-0880574-00

PATIENT
  Age: 55 Year
  Sex: Female

DRUGS (3)
  1. PROZAC [Concomitant]
     Indication: DEPRESSION
  2. HUMIRA [Suspect]
     Indication: PSORIASIS
     Dates: start: 20090101
  3. PRILOSEC [Concomitant]
     Indication: GASTROOESOPHAGEAL REFLUX DISEASE

REACTIONS (3)
  - LATENT TUBERCULOSIS [None]
  - BASAL CELL CARCINOMA [None]
  - SQUAMOUS CELL CARCINOMA [None]
